FAERS Safety Report 9970159 (Version 1)
Quarter: 2014Q1

REPORT INFORMATION
  Report Type: Spontaneous
  Country: FR (occurrence: FR)
  Receive Date: 20140306
  Receipt Date: 20140306
  Transmission Date: 20141002
  Serious: Yes (Other)
  Sender: FDA-Public Use
  Company Number: FR-009507513-1402FRA012361

PATIENT
  Age: 63 Year
  Sex: Male

DRUGS (8)
  1. JANUVIA [Suspect]
     Dosage: 1 DF, QD
     Route: 048
     Dates: start: 2010
  2. XARELTO [Suspect]
     Dosage: 20 MG, QD
     Route: 048
     Dates: start: 20130808, end: 20130814
  3. SIMVASTATIN [Suspect]
     Dosage: 20 MG, QD
     Route: 048
     Dates: start: 2001
  4. NISISCO [Suspect]
     Dosage: 1 DF, QD
     Route: 048
     Dates: start: 2001
  5. CORDARONE [Suspect]
     Dosage: 200 MG, QD
     Route: 048
     Dates: start: 2007
  6. MEDIATENSYL [Suspect]
     Dosage: 120 MG, QD
     Route: 048
     Dates: start: 2001
  7. HEMIGOXINE NATIVELLE [Suspect]
     Dosage: 0.125 MG, QD
     Route: 048
     Dates: start: 2007
  8. STAGID [Suspect]
     Dosage: 2100 MG, QD
     Route: 048
     Dates: start: 2010

REACTIONS (1)
  - Muscle rupture [Recovering/Resolving]
